FAERS Safety Report 9442025 (Version 1)
Quarter: 2013Q3

REPORT INFORMATION
  Report Type: Report from Study
  Country: NL (occurrence: NL)
  Receive Date: 20130806
  Receipt Date: 20130806
  Transmission Date: 20140515
  Serious: Yes (Death)
  Sender: FDA-Public Use
  Company Number: NL-ABBOTT-13P-114-1128701-00

PATIENT
  Age: 76 Year
  Sex: Male

DRUGS (10)
  1. LEUPRORELIN DEPOT [Suspect]
     Indication: PROSTATE CANCER
     Route: 058
     Dates: start: 20090807, end: 20130719
  2. LEUPRORELIN DEPOT [Suspect]
     Route: 058
     Dates: start: 20051125, end: 20090515
  3. ACETYLCYSTEINE [Concomitant]
     Indication: ASTHMA
     Route: 048
     Dates: end: 20130719
  4. ATENOLOL [Concomitant]
     Indication: HYPERTENSION
     Route: 048
     Dates: end: 20130719
  5. CARBASALAATCALCIUM [Concomitant]
     Indication: ANTICOAGULANT THERAPY
     Dosage: POWDER
     Route: 048
     Dates: end: 20130719
  6. LEVOTHYROXINE [Concomitant]
     Indication: THYROID DISORDER
     Dosage: ZUUR 0.5-1 TIME DAILY
     Route: 048
     Dates: end: 20130719
  7. LORAZEPAM [Concomitant]
     Indication: ANXIETY
     Route: 048
     Dates: end: 20130719
  8. LOSARTAN/HYDROCHLOORTHIAZIDE [Concomitant]
     Indication: HYPERTENSION
     Dosage: OMHULD 50/12.5 MG
     Route: 048
     Dates: end: 20130719
  9. SALMETEROL/FLUTICASONPROPIONAAT [Concomitant]
     Indication: ASTHMA
     Dosage: 50/100UG/DO 60DO DISK
     Route: 055
     Dates: end: 20130719
  10. TIOTROPIUM [Concomitant]
     Indication: ASTHMA
     Dosage: NEBULISER, 2.5UG/DO PATR 60 DO INH
     Route: 055
     Dates: end: 20130719

REACTIONS (1)
  - Death [Fatal]
